FAERS Safety Report 23276453 (Version 1)
Quarter: 2023Q4

REPORT INFORMATION
  Report Type: Spontaneous
  Country: CN (occurrence: CN)
  Receive Date: 20231208
  Receipt Date: 20231208
  Transmission Date: 20240110
  Serious: Yes (Hospitalization, Other)
  Sender: FDA-Public Use
  Company Number: CN-009507513-2312CHN002124

PATIENT
  Age: 65 Year
  Sex: Male
  Weight: 60 kg

DRUGS (2)
  1. KEYTRUDA [Suspect]
     Active Substance: PEMBROLIZUMAB
     Indication: Oesophageal squamous cell carcinoma
     Dosage: 200 MG, ONCE (ALSO REPORTED AS QD)
     Route: 041
     Dates: start: 20231109, end: 20231109
  2. SODIUM CHLORIDE [Concomitant]
     Active Substance: SODIUM CHLORIDE
     Indication: Medication dilution
     Dosage: 100 ML, ONCE (ALSO REPORTED AS QD)
     Route: 041
     Dates: start: 20231109, end: 20231109

REACTIONS (12)
  - Immune-mediated myocarditis [Not Recovered/Not Resolved]
  - Diabetes mellitus [Unknown]
  - Hepatitis B [Unknown]
  - Chest discomfort [Not Recovered/Not Resolved]
  - Troponin I increased [Not Recovered/Not Resolved]
  - Blood creatine phosphokinase MB increased [Not Recovered/Not Resolved]
  - N-terminal prohormone brain natriuretic peptide increased [Not Recovered/Not Resolved]
  - Myoglobin blood increased [Not Recovered/Not Resolved]
  - Amaurosis [Recovering/Resolving]
  - Malignant neoplasm progression [Unknown]
  - Dizziness [Not Recovered/Not Resolved]
  - Dyspnoea [Not Recovered/Not Resolved]

NARRATIVE: CASE EVENT DATE: 20231121
